FAERS Safety Report 8469262-8 (Version None)
Quarter: 2012Q2

REPORT INFORMATION
  Report Type: 
  Country: None (occurrence: None)
  Receive Date: 20120626
  Receipt Date: 20120622
  Transmission Date: 20120825
  Serious: No
  Sender: FDA-Public Use
  Company Number: US-BAYER-2012-062869

PATIENT
  Age: 75 Year
  Sex: Female

DRUGS (1)
  1. GADAVIST [Suspect]
     Indication: SCAN BRAIN
     Dosage: 6.4 ML, ONCE
     Dates: start: 20120622, end: 20120622

REACTIONS (3)
  - EYE SWELLING [None]
  - EYE PRURITUS [None]
  - ERYTHEMA [None]
